FAERS Safety Report 4413757-0 (Version None)
Quarter: 2004Q3

REPORT INFORMATION
  Report Type: 
  Country: None (occurrence: None)
  Receive Date: 20040728
  Receipt Date: 20040719
  Transmission Date: 20050211
  Serious: Yes (Hospitalization)
  Sender: FDA-Public Use
  Company Number: 200410487BNE

PATIENT
  Age: 86 Year
  Sex: Male

DRUGS (2)
  1. ASPIRIN [Suspect]
     Dosage: 75 MG, TOTAL DAILY, ORAL
     Route: 048
     Dates: end: 20040622
  2. ATORVASTATIN CALCIUM [Concomitant]

REACTIONS (2)
  - OESOPHAGEAL ULCER [None]
  - UPPER GASTROINTESTINAL HAEMORRHAGE [None]
